FAERS Safety Report 13948989 (Version 1)
Quarter: 2017Q3

REPORT INFORMATION
  Report Type: Spontaneous
  Country: US (occurrence: US)
  Receive Date: 20170908
  Receipt Date: 20170908
  Transmission Date: 20171128
  Serious: No
  Sender: FDA-Public Use
  Company Number: US-BAYER-2017-171343

PATIENT
  Age: 11 Year
  Sex: Female
  Weight: 43 kg

DRUGS (3)
  1. MIRALAX [Suspect]
     Active Substance: POLYETHYLENE GLYCOL 3350
     Indication: GASTROINTESTINAL DISORDER
     Dosage: 2 DF, QD
     Route: 048
     Dates: start: 20170901, end: 20170905
  2. ANTI-NAUSEA [FRUCTOSE,GLUCOSE,PHOSPHORIC ACID] [Concomitant]
     Dosage: UNK
  3. MIRALAX [Suspect]
     Active Substance: POLYETHYLENE GLYCOL 3350
     Indication: NAUSEA
     Dosage: 1 DF, QD
     Route: 048
     Dates: start: 20170901, end: 20170905

REACTIONS (4)
  - Product use in unapproved indication [Unknown]
  - Poor quality drug administered [Unknown]
  - Product solubility abnormal [None]
  - Off label use [Unknown]

NARRATIVE: CASE EVENT DATE: 20170901
